FAERS Safety Report 11072756 (Version 1)
Quarter: 2015Q2

REPORT INFORMATION
  Report Type: Spontaneous
  Country: SE (occurrence: SE)
  Receive Date: 20150428
  Receipt Date: 20150428
  Transmission Date: 20150821
  Serious: Yes (Other)
  Sender: FDA-Public Use
  Company Number: SE-TEVA-557927ISR

PATIENT
  Age: 66 Year
  Sex: Female

DRUGS (1)
  1. GABAPENTIN. [Suspect]
     Active Substance: GABAPENTIN
     Route: 065

REACTIONS (6)
  - Malaise [Unknown]
  - Abdominal pain [Unknown]
  - Fatigue [Unknown]
  - Diplopia [Unknown]
  - Vision blurred [Unknown]
  - Nausea [Unknown]
